FAERS Safety Report 8344783 (Version 2)
Quarter: 2012Q4

REPORT INFORMATION
  Report Type: 
  Country: US (occurrence: US)
  Receive Date: 20120120
  Receipt Date: 20121004
  Transmission Date: 20130627
  Serious: No
  Sender: FDA-Public Use
  Company Number: US-BIOGENIDEC-2012BI001851

PATIENT
  Age: 45 None
  Sex: Female

DRUGS (2)
  1. TYSABRI [Suspect]
     Indication: MULTIPLE SCLEROSIS
     Route: 042
     Dates: start: 20110901, end: 20120621
  2. FLONASE [Concomitant]
     Indication: INFECTION PROPHYLAXIS

REACTIONS (10)
  - Carpal tunnel syndrome [Not Recovered/Not Resolved]
  - Muscle spasms [Recovered/Resolved]
  - Hypotonia [Recovered/Resolved]
  - Muscular weakness [Not Recovered/Not Resolved]
  - Hypoaesthesia [Not Recovered/Not Resolved]
  - Central nervous system lesion [Recovered/Resolved]
  - Paraesthesia [Not Recovered/Not Resolved]
  - Back pain [Recovered/Resolved]
  - Sinusitis [Recovered/Resolved]
  - Multiple sclerosis relapse [Recovered/Resolved]
